FAERS Safety Report 13456361 (Version 1)
Quarter: 2017Q2

REPORT INFORMATION
  Report Type: Spontaneous
  Country: FR (occurrence: FR)
  Receive Date: 20170418
  Receipt Date: 20170418
  Transmission Date: 20170830
  Serious: Yes (Hospitalization)
  Sender: FDA-Public Use
  Company Number: FR-PFIZER INC-2017160061

PATIENT
  Age: 74 Year
  Sex: Male

DRUGS (2)
  1. DALACINE [Suspect]
     Active Substance: CLINDAMYCIN HYDROCHLORIDE
     Indication: DEVICE RELATED INFECTION
     Dosage: 600 MG, 1X/DAY
     Route: 048
     Dates: start: 20170329, end: 20170329
  2. TAVANIC [Suspect]
     Active Substance: LEVOFLOXACIN
     Indication: DEVICE RELATED INFECTION
     Dosage: 750 MG, 1X/DAY
     Route: 048
     Dates: start: 20170329, end: 20170329

REACTIONS (4)
  - Dyspnoea [Recovered/Resolved]
  - Malaise [Recovered/Resolved]
  - Oedema mouth [Recovered/Resolved]
  - Eyelid oedema [Recovered/Resolved]

NARRATIVE: CASE EVENT DATE: 20170329
